FAERS Safety Report 6128506-8 (Version None)
Quarter: 2009Q1

REPORT INFORMATION
  Report Type: 
  Country: None (occurrence: None)
  Receive Date: 20090323
  Receipt Date: 20090312
  Transmission Date: 20090719
  Serious: Yes (Other)
  Sender: FDA-Public Use
  Company Number: CA-BAXTER-2009BH002745

PATIENT
  Age: 62 Year
  Sex: Male

DRUGS (2)
  1. GAMMAGARD LIQUID [Suspect]
     Indication: RENAL TRANSPLANT
     Route: 042
     Dates: start: 20090209, end: 20090209
  2. GAMMAGARD LIQUID [Suspect]
     Indication: OFF LABEL USE
     Route: 042
     Dates: start: 20090209, end: 20090209

REACTIONS (3)
  - ANAPHYLACTIC REACTION [None]
  - ANXIETY [None]
  - CHILLS [None]
